FAERS Safety Report 7248680-X (Version None)
Quarter: 2011Q1

REPORT INFORMATION
  Report Type: 
  Country: None (occurrence: None)
  Receive Date: 20110128
  Receipt Date: 20110121
  Transmission Date: 20110831
  Serious: Yes (Hospitalization)
  Sender: FDA-Public Use
  Company Number: 2007BI014546

PATIENT
  Age: 48 Year
  Sex: Female

DRUGS (2)
  1. AVONEX [Suspect]
     Indication: MULTIPLE SCLEROSIS
     Route: 030
     Dates: start: 20020501, end: 20030101
  2. AVONEX [Suspect]
     Route: 030
     Dates: start: 20030101

REACTIONS (8)
  - CARTILAGE INJURY [None]
  - WOUND DEHISCENCE [None]
  - ARTHRITIS [None]
  - OVERWEIGHT [None]
  - PATELLA FRACTURE [None]
  - INCISION SITE INFECTION [None]
  - MULTIPLE SCLEROSIS RELAPSE [None]
  - FALL [None]
